FAERS Safety Report 4642932-5 (Version None)
Quarter: 2005Q2

REPORT INFORMATION
  Report Type: 
  Country: None (occurrence: None)
  Receive Date: 20050421
  Receipt Date: 20050217
  Transmission Date: 20051028
  Serious: Yes (Hospitalization)
  Sender: FDA-Public Use
  Company Number: 2005000129

PATIENT
  Age: 62 Year
  Sex: Male
  Weight: 73 kg

DRUGS (1)
  1. IRINOTECAN HCL [Suspect]
     Indication: RECTAL CANCER
     Dosage: 114 MG, INTRAVENOUS
     Route: 042
     Dates: start: 20030325, end: 20041227

REACTIONS (11)
  - DIARRHOEA [None]
  - DRUG INTOLERANCE [None]
  - HAEMATURIA [None]
  - INFUSION RELATED REACTION [None]
  - LEUKOCYTOSIS [None]
  - MALIGNANT NEOPLASM PROGRESSION [None]
  - METASTASES TO BLADDER [None]
  - METASTASES TO LUNG [None]
  - POLYNEUROPATHY [None]
  - THROMBOCYTOPENIA [None]
  - URINE ABNORMALITY [None]
